FAERS Safety Report 12242526 (Version 1)
Quarter: 2016Q2

REPORT INFORMATION
  Report Type: Spontaneous
  Country: US (occurrence: US)
  Receive Date: 20160406
  Receipt Date: 20160406
  Transmission Date: 20160815
  Serious: No
  Sender: FDA-Public Use
  Company Number: US-WARNER CHILCOTT, LLC-1050279

PATIENT
  Age: 41 Year
  Sex: Female

DRUGS (1)
  1. FEMRING [Suspect]
     Active Substance: ESTRADIOL ACETATE
     Indication: ARTIFICIAL MENOPAUSE
     Route: 067
     Dates: start: 201408

REACTIONS (4)
  - Headache [Recovered/Resolved]
  - Night sweats [Recovered/Resolved]
  - Drug ineffective [Recovered/Resolved]
  - Feeling hot [Recovered/Resolved]

NARRATIVE: CASE EVENT DATE: 20151028
